FAERS Safety Report 18912171 (Version 1)
Quarter: 2021Q1

REPORT INFORMATION
  Report Type: Spontaneous
  Country: CN (occurrence: CN)
  Receive Date: 20210219
  Receipt Date: 20210219
  Transmission Date: 20210420
  Serious: No
  Sender: FDA-Public Use
  Company Number: CN-ALKEM LABORATORIES LIMITED-CN-ALKEM-2020-06623

PATIENT
  Age: 14 Year
  Sex: Male

DRUGS (4)
  1. LINEZOLID. [Suspect]
     Active Substance: LINEZOLID
     Indication: PNEUMONIA STAPHYLOCOCCAL
     Dosage: UNK
     Route: 048
     Dates: start: 20200103, end: 202001
  2. ACETYLCYSTEINE. [Concomitant]
     Active Substance: ACETYLCYSTEINE
     Indication: PNEUMONIA STAPHYLOCOCCAL
     Dosage: 3 MILLILITER, EVERY 8 HOURS
     Route: 055
     Dates: start: 201912
  3. TIANLI [LINEZOLID] [Suspect]
     Active Substance: LINEZOLID
     Indication: PNEUMONIA STAPHYLOCOCCAL
     Dosage: 600 MILLIGRAM, EVERY 12 HOURS
     Route: 041
     Dates: start: 20191222, end: 20200102
  4. TERBUTALINE [Concomitant]
     Active Substance: TERBUTALINE
     Indication: PNEUMONIA STAPHYLOCOCCAL
     Dosage: 5 MILLILITER, EVERY 8 HOURS
     Route: 055
     Dates: start: 201912

REACTIONS (2)
  - Drug intolerance [Unknown]
  - Trichoglossia [Recovered/Resolved]

NARRATIVE: CASE EVENT DATE: 20200105
